FAERS Safety Report 5986207-0 (Version None)
Quarter: 2008Q4

REPORT INFORMATION
  Report Type: 
  Country: None (occurrence: None)
  Receive Date: 20081209
  Receipt Date: 20081128
  Transmission Date: 20090506
  Serious: Yes (Hospitalization)
  Sender: FDA-Public Use
  Company Number: NO-BAXTER-2008BH013158

PATIENT
  Age: 17 Year
  Sex: Female

DRUGS (6)
  1. ENDOXAN BAXTER [Suspect]
     Indication: LUPUS NEPHRITIS
     Dosage: 13 INFUSIONS
     Route: 065
     Dates: start: 19990630, end: 20010513
  2. IMUREL [Suspect]
     Indication: LUPUS NEPHRITIS
     Dosage: 75 MG X 1, REDUCED TO 25 MG X 1
     Route: 065
     Dates: start: 20010815, end: 20050125
  3. PLAQUENIL [Concomitant]
     Indication: LUPUS NEPHRITIS
     Dosage: 400 MG X 3/WEEK, REDUCED TO 200 MG X 4/WEEK
     Dates: start: 19990101
  4. WARFARIN SODIUM [Concomitant]
     Indication: ANTIPHOSPHOLIPID SYNDROME
     Dates: start: 19990101
  5. CERAZETTE [Concomitant]
     Indication: CONTRACEPTION
     Dates: start: 20070101
  6. ALBYL-E [Concomitant]
     Indication: THROMBOSIS PROPHYLAXIS
     Dates: start: 19990101

REACTIONS (1)
  - MALIGNANT MELANOMA [None]
